FAERS Safety Report 4508870-3 (Version None)
Quarter: 2004Q4

REPORT INFORMATION
  Report Type: 
  Country: None (occurrence: None)
  Receive Date: 20041122
  Receipt Date: 20041122
  Transmission Date: 20050328
  Serious: Yes (Disabling, Other)
  Sender: FDA-Public Use
  Company Number: None

PATIENT
  Age: 55 Year
  Sex: Female
  Weight: 77.1115 kg

DRUGS (1)
  1. TEQUIN [Suspect]
     Indication: URINARY TRACT INFECTION
     Dosage: 1 PILL FOR 14 DAYS
     Dates: start: 20041007, end: 20041021

REACTIONS (8)
  - ANXIETY [None]
  - HYPERHIDROSIS [None]
  - INSOMNIA [None]
  - MYALGIA [None]
  - NEUROPATHY [None]
  - PAIN [None]
  - PANIC ATTACK [None]
  - TENDON DISORDER [None]
